FAERS Safety Report 19945158 (Version 2)
Quarter: 2021Q4

REPORT INFORMATION
  Report Type: Spontaneous
  Country: US (occurrence: None)
  Receive Date: 20211011
  Receipt Date: 20211124
  Transmission Date: 20220303
  Serious: Yes (Hospitalization)
  Sender: FDA-Public Use
  Company Number: 2021A762253

PATIENT
  Age: 30836 Day
  Sex: Female
  Weight: 64.4 kg

DRUGS (1)
  1. SYMBICORT [Suspect]
     Active Substance: BUDESONIDE\FORMOTEROL FUMARATE DIHYDRATE
     Indication: Asthma
     Dosage: SYMBICORT 80/4.5 MCG. 2 PUFFS TWICE EACH DAY
     Route: 055

REACTIONS (4)
  - Hip fracture [Recovered/Resolved]
  - Drug dose omission by device [Recovered/Resolved]
  - Device malfunction [Unknown]
  - Device breakage [Unknown]

NARRATIVE: CASE EVENT DATE: 20210801
